FAERS Safety Report 17861459 (Version 1)
Quarter: 2020Q2

REPORT INFORMATION
  Report Type: Spontaneous
  Country: JP (occurrence: JP)
  Receive Date: 20200604
  Receipt Date: 20200604
  Transmission Date: 20200714
  Serious: Yes (Other)
  Sender: FDA-Public Use
  Company Number: JP-GLAXOSMITHKLINE-JP2020JPN091279

PATIENT
  Age: 84 Year
  Sex: Female

DRUGS (2)
  1. NUCALA [Suspect]
     Active Substance: MEPOLIZUMAB
     Indication: ASTHMA
     Dosage: UNK
     Route: 058
  2. NUCALA [Suspect]
     Active Substance: MEPOLIZUMAB
     Dosage: 100 MG, 1D
     Route: 058
     Dates: start: 20200528, end: 20200528

REACTIONS (3)
  - Muscular weakness [Unknown]
  - Injection site pain [Recovered/Resolved]
  - Monoplegia [Unknown]

NARRATIVE: CASE EVENT DATE: 20200528
